FAERS Safety Report 16310724 (Version 1)
Quarter: 2019Q2

REPORT INFORMATION
  Report Type: Spontaneous
  Country: US (occurrence: US)
  Receive Date: 20190513
  Receipt Date: 20190513
  Transmission Date: 20190711
  Serious: No
  Sender: FDA-Public Use
  Company Number: None

PATIENT
  Age: 29 Year
  Sex: Female
  Weight: 60.75 kg

DRUGS (1)
  1. GADOVIST (GADOBUTROL) [Suspect]
     Active Substance: GADOBUTROL
     Indication: NUCLEAR MAGNETIC RESONANCE IMAGING
     Route: 042
     Dates: start: 20181118

REACTIONS (17)
  - Renal impairment [None]
  - Dysgeusia [None]
  - Papule [None]
  - Visual impairment [None]
  - Headache [None]
  - Tinnitus [None]
  - Oedema [None]
  - Tachycardia [None]
  - Feeling abnormal [None]
  - Dizziness [None]
  - Nausea [None]
  - Paraesthesia [None]
  - Dyspnoea [None]
  - Productive cough [None]
  - Vertigo [None]
  - Dry eye [None]
  - Vitiligo [None]

NARRATIVE: CASE EVENT DATE: 20181118
